FAERS Safety Report 15084116 (Version 1)
Quarter: 2018Q2

REPORT INFORMATION
  Report Type: Spontaneous
  Country: PT (occurrence: PT)
  Receive Date: 20180628
  Receipt Date: 20180628
  Transmission Date: 20180711
  Serious: Yes (Other)
  Sender: FDA-Public Use
  Company Number: PT-GILEAD-2018-0347027

PATIENT
  Age: 48 Year
  Sex: Male
  Weight: 101 kg

DRUGS (3)
  1. CLOXAZOLAM [Concomitant]
     Active Substance: CLOXAZOLAM
  2. NEVIRAPINE. [Concomitant]
     Active Substance: NEVIRAPINE
     Indication: HIV INFECTION
     Dosage: 400 MG, QD
     Route: 048
     Dates: start: 20081028, end: 20180612
  3. TRUVADA [Suspect]
     Active Substance: EMTRICITABINE\TENOFOVIR DISOPROXIL FUMARATE
     Indication: HIV INFECTION
     Dosage: 1 DF, QD
     Route: 048
     Dates: start: 20081028, end: 20180612

REACTIONS (1)
  - Creatinine renal clearance increased [Unknown]

NARRATIVE: CASE EVENT DATE: 20180509
